FAERS Safety Report 9286439 (Version 1)
Quarter: 2013Q2

REPORT INFORMATION
  Report Type: Spontaneous
  Country: US (occurrence: None)
  Receive Date: 20130510
  Receipt Date: 20130510
  Transmission Date: 20140414
  Serious: Yes (Hospitalization)
  Sender: FDA-Public Use
  Company Number: None

PATIENT
  Age: 85 Year
  Sex: Male
  Weight: 68.1 kg

DRUGS (26)
  1. COUMADIN [Suspect]
     Indication: CEREBROVASCULAR ACCIDENT
     Dosage: CHRONIC
     Route: 048
  2. COUMADIN [Suspect]
     Dosage: CHRONIC
     Route: 048
  3. ASA [Suspect]
     Dosage: CHRONIC
     Route: 048
  4. FLOMAX [Concomitant]
  5. PHENERGAN [Concomitant]
  6. COMPAZINE [Concomitant]
  7. MIRALAX [Concomitant]
  8. PROTONIX [Concomitant]
  9. NTG [Concomitant]
  10. IMODIUM [Concomitant]
  11. SYNTHROID [Concomitant]
  12. IMDUR [Concomitant]
  13. FUROSEMIDE [Concomitant]
  14. FINASTERIDE [Concomitant]
  15. FERROUS SULFATE [Concomitant]
  16. EUCERIN [Concomitant]
  17. BRNADRYL [Concomitant]
  18. ROBITUSSIN DM [Concomitant]
  19. VITAMIN B12 [Concomitant]
  20. CHLORPHENIRAMINE [Concomitant]
  21. COREG [Concomitant]
  22. BISACODYL [Concomitant]
  23. LIPITOR [Concomitant]
  24. ALLOPURINOL [Concomitant]
  25. MYLANTA [Concomitant]
  26. TYLENOL [Concomitant]

REACTIONS (4)
  - Anaemia [None]
  - Haemorrhage [None]
  - International normalised ratio increased [None]
  - Renal failure acute [None]
